FAERS Safety Report 8180293-8 (Version None)
Quarter: 2012Q1

REPORT INFORMATION
  Report Type: 
  Country: None (occurrence: None)
  Receive Date: 20120215
  Receipt Date: 20120131
  Transmission Date: 20120608
  Serious: Yes (Other)
  Sender: FDA-Public Use
  Company Number: 2012030941

PATIENT
  Age: 40 Year
  Sex: Male
  Weight: 125.1928 kg

DRUGS (9)
  1. LANTUS [Concomitant]
  2. HYDROCHLOROTHIAZIDE [Concomitant]
  3. LEXAPRO [Concomitant]
  4. OXYGEN (OXYGEN) [Concomitant]
  5. EXFORGE [Concomitant]
  6. METFORMIN HCL [Concomitant]
  7. RAMIPRIL [Concomitant]
  8. MUPIROCIN [Concomitant]
  9. HIZENTRA [Suspect]
     Indication: IMMUNODEFICIENCY COMMON VARIABLE
     Dosage: 20 G 1X/WEEK, 4 GM 20 ML VIAL, 200 ML IN 6 SITES OVER 1-2 HOURS, SUBCUTANEOUS
     Route: 058

REACTIONS (3)
  - INFECTED SKIN ULCER [None]
  - PAIN [None]
  - WOUND SECRETION [None]
